FAERS Safety Report 8120665-0 (Version None)
Quarter: 2012Q1

REPORT INFORMATION
  Report Type: 
  Country: None (occurrence: None)
  Receive Date: 20120207
  Receipt Date: 20120201
  Transmission Date: 20120608
  Serious: Yes (Hospitalization, Other)
  Sender: FDA-Public Use
  Company Number: US-BAYER-201012511NA

PATIENT
  Sex: Female
  Weight: 129 kg

DRUGS (20)
  1. YASMIN [Suspect]
     Indication: CONTRACEPTION
  2. DESOXIMETASONE [Concomitant]
     Indication: DRY SKIN
  3. IBUPROFEN [Concomitant]
  4. YASMIN [Suspect]
     Indication: MIGRAINE
     Dosage: UNK
     Dates: start: 20040821, end: 20080815
  5. YASMIN [Suspect]
     Indication: MENSTRUAL CYCLE MANAGEMENT
  6. DROSPIRENONE AND ETHINYL ESTRADIOL [Suspect]
     Indication: MIGRAINE
     Dosage: UNK
     Dates: start: 20080914, end: 20091207
  7. AMOXICILLIN [Concomitant]
     Indication: PHARYNGITIS STREPTOCOCCAL
  8. DROSPIRENONE AND ETHINYL ESTRADIOL [Suspect]
     Indication: CONTRACEPTION
  9. CEFUROXIME [Concomitant]
     Indication: SINUSITIS
  10. DROSPIRENONE AND ETHINYL ESTRADIOL [Suspect]
     Indication: MENSTRUAL CYCLE MANAGEMENT
  11. ALLEGRA [Concomitant]
     Route: 048
  12. METOCLOPRAMIDE [Concomitant]
     Indication: ABDOMINAL PAIN UPPER
  13. TRIAMCINOLONE [Concomitant]
     Indication: RASH
  14. TRIAMCINOLONE [Concomitant]
     Indication: DRY SKIN
  15. YASMIN [Suspect]
     Indication: MENORRHAGIA
  16. DROSPIRENONE AND ETHINYL ESTRADIOL [Suspect]
     Indication: MENORRHAGIA
  17. AZITHROMYCIN [Concomitant]
     Indication: SINUSITIS
  18. DEPAKOTE [Concomitant]
     Route: 048
  19. TRANXENE [Concomitant]
     Route: 048
  20. MOTRIN [Concomitant]

REACTIONS (13)
  - ABDOMINAL DISTENSION [None]
  - CONSTIPATION [None]
  - NAUSEA [None]
  - ANXIETY [None]
  - SCAR [None]
  - CHOLECYSTITIS CHRONIC [None]
  - ABDOMINAL PAIN UPPER [None]
  - GALLBLADDER DISORDER [None]
  - ABDOMINAL PAIN [None]
  - DEPRESSION [None]
  - FLATULENCE [None]
  - DYSPEPSIA [None]
  - DIARRHOEA [None]
